FAERS Safety Report 22104960 (Version 22)
Quarter: 2025Q4

REPORT INFORMATION
  Report Type: Report from Study
  Country: US (occurrence: US)
  Receive Date: 20230316
  Receipt Date: 20251226
  Transmission Date: 20260117
  Serious: Yes (Other)
  Sender: TAKEDA
  Company Number: US-TAKEDA-2023TUS026760

PATIENT
  Age: 26 Year
  Sex: Male

DRUGS (5)
  1. ADVATE [Suspect]
     Active Substance: ANTIHEMOPHILIC FACTOR, HUMAN RECOMBINANT
     Indication: Haemorrhage
     Dosage: 3000 INTERNATIONAL UNIT
  2. ADVATE [Suspect]
     Active Substance: ANTIHEMOPHILIC FACTOR, HUMAN RECOMBINANT
     Dosage: 2500 INTERNATIONAL UNIT
  3. ADVATE [Suspect]
     Active Substance: ANTIHEMOPHILIC FACTOR, HUMAN RECOMBINANT
     Dosage: 3000 INTERNATIONAL UNIT
  4. ADVATE [Suspect]
     Active Substance: ANTIHEMOPHILIC FACTOR, HUMAN RECOMBINANT
     Dosage: 3000 INTERNATIONAL UNIT
  5. HEMLIBRA [Concomitant]
     Active Substance: EMICIZUMAB-KXWH
     Dosage: UNK

REACTIONS (22)
  - Epistaxis [Unknown]
  - Haemarthrosis [Not Recovered/Not Resolved]
  - Kidney infection [Unknown]
  - Spontaneous haemorrhage [Recovered/Resolved]
  - Contusion [Not Recovered/Not Resolved]
  - Chest injury [Unknown]
  - Haemorrhage [Recovered/Resolved]
  - COVID-19 [Not Recovered/Not Resolved]
  - Joint swelling [Unknown]
  - Back pain [Unknown]
  - Tonsillar hypertrophy [Unknown]
  - Arthropathy [Unknown]
  - Ligament sprain [Unknown]
  - Fall [Unknown]
  - Pain [Unknown]
  - Injury [Unknown]
  - Product availability issue [Recovered/Resolved]
  - Pain in extremity [Unknown]
  - Gait inability [Unknown]
  - Limb injury [Unknown]
  - Arthralgia [Recovered/Resolved]
  - Abdominal pain upper [Unknown]

NARRATIVE: CASE EVENT DATE: 20200929
